FAERS Safety Report 5288872-2 (Version None)
Quarter: 2007Q1

REPORT INFORMATION
  Report Type: 
  Country: None (occurrence: None)
  Receive Date: 20070118
  Receipt Date: 20061110
  Transmission Date: 20070707
  Serious: Yes (Other)
  Sender: FDA-Public Use
  Company Number: HQWYE650116NOV06

PATIENT
  Age: 30 Year
  Sex: Female
  Weight: 68.1 kg

DRUGS (3)
  1. ADVIL PM [Suspect]
     Indication: INSOMNIA
     Dosage: 2 CAPLETS, ORAL
     Route: 048
     Dates: start: 20061001, end: 20061101
  2. ADVIL PM [Suspect]
     Indication: NASOPHARYNGITIS
     Dosage: 2 CAPLETS, ORAL
     Route: 048
     Dates: start: 20061001, end: 20061101
  3. MULTIVITAMINS (ASCORBIC ACID/ERGOCALCIFEROL/FOLIC ACID/NICOTINAMIDE/PA [Concomitant]

REACTIONS (1)
  - DRUG EFFECT DECREASED [None]
